FAERS Safety Report 24531224 (Version 1)
Quarter: 2024Q4

REPORT INFORMATION
  Report Type: Spontaneous
  Country: KR (occurrence: KR)
  Receive Date: 20241022
  Receipt Date: 20241022
  Transmission Date: 20250115
  Serious: Yes (Death)
  Sender: MALLINCKRODT
  Company Number: KR-MALLINCKRODT-MNK202406364

PATIENT
  Age: 3 Day

DRUGS (2)
  1. NITRIC OXIDE [Suspect]
     Active Substance: NITRIC OXIDE
     Indication: Newborn persistent pulmonary hypertension
     Dosage: UNKNOWN
     Route: 055
     Dates: start: 20241013, end: 20241014
  2. NITRIC OXIDE [Suspect]
     Active Substance: NITRIC OXIDE
     Indication: Neonatal respiratory distress syndrome

REACTIONS (4)
  - Newborn persistent pulmonary hypertension [Fatal]
  - Neonatal respiratory distress syndrome [Fatal]
  - Condition aggravated [Fatal]
  - Product use issue [Unknown]

NARRATIVE: CASE EVENT DATE: 20241001
